FAERS Safety Report 9316324 (Version 1)
Quarter: 2013Q2

REPORT INFORMATION
  Report Type: Spontaneous
  Country: US (occurrence: None)
  Receive Date: 20130528
  Receipt Date: 20130528
  Transmission Date: 20140414
  Serious: Yes (Hospitalization)
  Sender: FDA-Public Use
  Company Number: None

PATIENT
  Age: 76 Year
  Sex: Male
  Weight: 70.31 kg

DRUGS (2)
  1. CIPROFLOXACN [Suspect]
     Indication: DIVERTICULITIS
     Dates: start: 20130506, end: 20130508
  2. METRONIDAZOLE [Suspect]
     Dates: start: 20130506, end: 20130508

REACTIONS (8)
  - Decreased appetite [None]
  - Insomnia [None]
  - Cough [None]
  - Nausea [None]
  - Headache [None]
  - Constipation [None]
  - Pain in extremity [None]
  - Dysstasia [None]
